FAERS Safety Report 9539628 (Version 1)
Quarter: 2013Q3

REPORT INFORMATION
  Report Type: Spontaneous
  Country: JP (occurrence: JP)
  Receive Date: 20130920
  Receipt Date: 20130920
  Transmission Date: 20140515
  Serious: Yes (Other)
  Sender: FDA-Public Use
  Company Number: JP-ASTRAZENECA-2013SE69113

PATIENT
  Age: 75 Year
  Sex: Female
  Weight: 55 kg

DRUGS (6)
  1. CARBOCAINE [Suspect]
     Indication: EPIDURAL ANAESTHESIA
     Route: 008
  2. DIPRIVAN [Suspect]
     Indication: INDUCTION AND MAINTENANCE OF ANAESTHESIA
     Route: 042
  3. ANAPEINE [Suspect]
     Indication: EPIDURAL ANAESTHESIA
     Route: 008
  4. REMIFENTANIL [Suspect]
     Indication: INDUCTION AND MAINTENANCE OF ANAESTHESIA
  5. MORPHINE HYDROCHLORIDE [Suspect]
     Indication: EPIDURAL ANAESTHESIA
     Route: 008
  6. ROCURONIUM [Suspect]
     Indication: INDUCTION AND MAINTENANCE OF ANAESTHESIA

REACTIONS (3)
  - Stress cardiomyopathy [Recovered/Resolved]
  - Blood pressure increased [Recovered/Resolved]
  - Heart rate increased [Recovered/Resolved]
